FAERS Safety Report 17391568 (Version 5)
Quarter: 2020Q2

REPORT INFORMATION
  Report Type: Spontaneous
  Country: FR (occurrence: FR)
  Receive Date: 20200207
  Receipt Date: 20200406
  Transmission Date: 20200713
  Serious: Yes (Other)
  Sender: FDA-Public Use
  Company Number: FR-ACTELION-A-NJ2020-201679

PATIENT
  Age: 83 Year
  Sex: Female

DRUGS (1)
  1. ILOPROST. [Suspect]
     Active Substance: ILOPROST
     Indication: PRODUCT USED FOR UNKNOWN INDICATION
     Dosage: 5 UG
     Route: 055
     Dates: start: 20200113

REACTIONS (8)
  - Condition aggravated [Not Recovered/Not Resolved]
  - Wrong technique in product usage process [Recovered/Resolved]
  - Fatigue [Unknown]
  - Eye ulcer [Unknown]
  - Renal impairment [Unknown]
  - Product dose omission [Unknown]
  - Epistaxis [Unknown]
  - Dyspnoea [Unknown]
